FAERS Safety Report 7769389-X (Version None)
Quarter: 2011Q3

REPORT INFORMATION
  Report Type: 
  Country: None (occurrence: None)
  Receive Date: 20110922
  Receipt Date: 20110408
  Transmission Date: 20111222
  Serious: No
  Sender: FDA-Public Use
  Company Number: US-ASTRAZENECA-2011SE20410

PATIENT
  Age: 49 Year
  Sex: Female
  Weight: 104.3 kg

DRUGS (5)
  1. SEROQUEL [Suspect]
     Route: 048
     Dates: start: 20100401
  2. NEXIUM [Suspect]
     Route: 048
     Dates: start: 20100101
  3. CELEBREX [Concomitant]
  4. SYMBICORT [Suspect]
     Route: 055
     Dates: start: 20100401
  5. OXYCONTIN [Concomitant]

REACTIONS (4)
  - DIARRHOEA [None]
  - BODY HEIGHT DECREASED [None]
  - BURNING SENSATION [None]
  - BACK DISORDER [None]
